FAERS Safety Report 22851706 (Version 2)
Quarter: 2025Q2

REPORT INFORMATION
  Report Type: Report from Study
  Country: US (occurrence: US)
  Receive Date: 20230823
  Receipt Date: 20250408
  Transmission Date: 20250717
  Serious: Yes (Death, Other)
  Sender: JOHNSON AND JOHNSON
  Company Number: US-JNJFOC-20230843135

PATIENT
  Age: 52 Year
  Sex: Male

DRUGS (1)
  1. CILTACABTAGENE AUTOLEUCEL [Suspect]
     Active Substance: CILTACABTAGENE AUTOLEUCEL
     Indication: Plasma cell myeloma
     Route: 065
     Dates: start: 2023

REACTIONS (5)
  - Bacterial infection [Fatal]
  - Immune effector cell-associated neurotoxicity syndrome [Unknown]
  - Pseudomonal sepsis [Unknown]
  - Neurotoxicity [Unknown]
  - Pneumonia [Unknown]
